FAERS Safety Report 18571046 (Version 1)
Quarter: 2020Q4

REPORT INFORMATION
  Report Type: Spontaneous
  Country: US (occurrence: US)
  Receive Date: 20201202
  Receipt Date: 20201202
  Transmission Date: 20210114
  Serious: No
  Sender: FDA-Public Use
  Company Number: US-NOVEN PHARMACEUTICALS, INC.-2020US004556

PATIENT
  Sex: Female
  Weight: 46.26 kg

DRUGS (8)
  1. MAGNESIUM [Concomitant]
     Active Substance: MAGNESIUM
     Indication: GASTRIC DISORDER
  2. ESTRADIOL. [Suspect]
     Active Substance: ESTRADIOL
     Indication: IRRITABILITY
  3. TYLENOL [Concomitant]
     Active Substance: ACETAMINOPHEN
     Indication: PRODUCT USED FOR UNKNOWN INDICATION
     Dosage: UNK
  4. MAGNESIUM [Concomitant]
     Active Substance: MAGNESIUM
     Indication: NERVOUS SYSTEM DISORDER
     Dosage: UNK
  5. ESTRADIOL. [Suspect]
     Active Substance: ESTRADIOL
     Indication: BONE DISORDER
  6. TRAZODONE [Concomitant]
     Active Substance: TRAZODONE HYDROCHLORIDE
     Indication: PRODUCT USED FOR UNKNOWN INDICATION
     Dosage: 100 MG, DAILY
     Route: 048
  7. ESTRADIOL. [Suspect]
     Active Substance: ESTRADIOL
     Indication: HOT FLUSH
     Route: 062
  8. ESTRADIOL. [Suspect]
     Active Substance: ESTRADIOL
     Indication: OFF LABEL USE

REACTIONS (5)
  - Application site vesicles [Unknown]
  - Skin irritation [Unknown]
  - Vomiting [Unknown]
  - Nausea [Unknown]
  - Off label use [Recovered/Resolved]
